FAERS Safety Report 8087117-8 (Version None)
Quarter: 2012Q1

REPORT INFORMATION
  Report Type: 
  Country: None (occurrence: None)
  Receive Date: 20120128
  Receipt Date: 20110509
  Transmission Date: 20120608
  Serious: No
  Sender: FDA-Public Use
  Company Number: US-ABBOTT-11P-163-0725260-00

PATIENT
  Sex: Male

DRUGS (10)
  1. HUMIRA [Suspect]
     Indication: PSORIATIC ARTHROPATHY
     Dates: start: 20110413
  2. METHOTREXATE [Concomitant]
  3. FOLIC ACID [Concomitant]
     Indication: PRODUCT USED FOR UNKNOWN INDICATION
     Dosage: 6 DAYS A WEEK
  4. HALOBETASOL [Concomitant]
     Indication: PSORIASIS
     Dosage: DAILY
  5. LISINOPRIL [Concomitant]
     Indication: HYPERTENSION
  6. CRESTOR [Concomitant]
     Indication: PROPHYLAXIS
  7. HUMIRA [Suspect]
     Dates: start: 20060701, end: 20070101
  8. CRESTOR [Concomitant]
     Indication: MYOCARDIAL INFARCTION
  9. METHOTREXATE [Concomitant]
     Indication: PRODUCT USED FOR UNKNOWN INDICATION
  10. VECTICAL [Concomitant]
     Indication: PSORIASIS
     Dosage: DAILY

REACTIONS (4)
  - DEVICE MALFUNCTION [None]
  - ACCIDENTAL EXPOSURE [None]
  - PAIN IN EXTREMITY [None]
  - INJECTION SITE PAIN [None]
